FAERS Safety Report 22792004 (Version 3)
Quarter: 2024Q1

REPORT INFORMATION
  Report Type: Spontaneous
  Country: PL (occurrence: PL)
  Receive Date: 20230807
  Receipt Date: 20240122
  Transmission Date: 20240410
  Serious: Yes (Other)
  Sender: FDA-Public Use
  Company Number: PL-MYLANLABS-2023M1076779

PATIENT
  Age: 45 Year
  Sex: Male

DRUGS (5)
  1. TELMISARTAN [Suspect]
     Active Substance: TELMISARTAN
     Indication: Hypertension
     Dosage: 40 MILLIGRAM, ONCE A DAY (40 MILLIGRAM, QD (40 MG DAILY)
     Route: 065
  2. NEBIVOLOL [Suspect]
     Active Substance: NEBIVOLOL
     Indication: Hypertension
     Dosage: 2.5 MILLIGRAM, ONCE A DAY (2.5 MILLIGRAM, QD (IN MORNING)
     Route: 065
  3. METOPROLOL [Suspect]
     Active Substance: METOPROLOL
     Indication: Heart rate increased
     Dosage: 50 MILLIGRAM, ONCE A DAY (50 MILLIGRAM, QD)
     Route: 065
  4. METOPROLOL [Suspect]
     Active Substance: METOPROLOL
     Indication: Hypertension
  5. HYDROCHLOROTHIAZIDE\TELMISARTAN [Suspect]
     Active Substance: HYDROCHLOROTHIAZIDE\TELMISARTAN
     Indication: Hypertension
     Dosage: UNK (TELMISARTAN 40 MG + HCTZ 12.5 MG (COMBINATION) ONCE DAILY IN THE MORNING )
     Route: 065

REACTIONS (3)
  - Erectile dysfunction [Recovered/Resolved]
  - Drug ineffective [Recovered/Resolved]
  - Therapeutic product effect incomplete [Unknown]
